FAERS Safety Report 4476635-7 (Version None)
Quarter: 2004Q4

REPORT INFORMATION
  Report Type: 
  Country: None (occurrence: None)
  Receive Date: 20041013
  Receipt Date: 20040928
  Transmission Date: 20050328
  Serious: Yes (Hospitalization)
  Sender: FDA-Public Use
  Company Number: USA040979494

PATIENT
  Age: 51 Year
  Sex: Female

DRUGS (6)
  1. PROZAC [Suspect]
     Dosage: 100 MG DAY
  2. BUSPAR [Concomitant]
  3. KLONOPIN [Concomitant]
  4. VASOTEC [Concomitant]
  5. NEURONTIN [Concomitant]
  6. EFFEXOR [Concomitant]

REACTIONS (2)
  - ORTHOPEDIC PROCEDURE [None]
  - PRESCRIBED OVERDOSE [None]
